FAERS Safety Report 8601849 (Version 20)
Quarter: 2016Q4

REPORT INFORMATION
  Report Type: Spontaneous
  Country: FR (occurrence: FR)
  Receive Date: 20120606
  Receipt Date: 20161121
  Transmission Date: 20170207
  Serious: Yes (Disabling)
  Sender: FDA-Public Use
  Company Number: FR-PFIZER INC-2012032433

PATIENT
  Age: 61 Year
  Sex: Female
  Weight: 70 kg

DRUGS (5)
  1. EFFEXOR LP [Concomitant]
     Active Substance: VENLAFAXINE HYDROCHLORIDE
     Indication: DEPRESSION
     Dosage: 75 MG, DAILY
     Route: 048
     Dates: start: 20110103
  2. LYSANXIA [Concomitant]
     Active Substance: PRAZEPAM
     Dosage: 10 MG, DAILY
     Route: 048
     Dates: start: 200501
  3. AROMASINE [Suspect]
     Active Substance: EXEMESTANE
     Indication: BREAST CANCER
     Dosage: 25 MG, 1X/DAY
     Route: 048
     Dates: start: 20110815, end: 20120326
  4. DOLIPRANE [Concomitant]
     Active Substance: ACETAMINOPHEN
     Dosage: UNK
  5. ESOMEPRAZOLE [Concomitant]
     Active Substance: ESOMEPRAZOLE
     Dosage: UNK

REACTIONS (26)
  - Pruritus [Recovered/Resolved]
  - Erythema [Recovering/Resolving]
  - Hyperhidrosis [Recovering/Resolving]
  - Weight increased [Not Recovered/Not Resolved]
  - Burning sensation [Recovered/Resolved]
  - Migraine [Unknown]
  - Rash [Recovering/Resolving]
  - Alopecia [Recovering/Resolving]
  - Skin reaction [Not Recovered/Not Resolved]
  - Anxiety [Not Recovered/Not Resolved]
  - Dry skin [Unknown]
  - Skin lesion [Recovering/Resolving]
  - Purpura senile [Unknown]
  - Alopecia scarring [Recovering/Resolving]
  - Pruritus [Not Recovered/Not Resolved]
  - Inflammation [Recovering/Resolving]
  - Eye irritation [Unknown]
  - Folliculitis [Recovering/Resolving]
  - Photodermatosis [Not Recovered/Not Resolved]
  - Pain [Recovering/Resolving]
  - Tenosynovitis [Unknown]
  - Abdominal pain upper [Unknown]
  - Acne [Recovering/Resolving]
  - Headache [Unknown]
  - Dysmorphophobia [Not Recovered/Not Resolved]
  - Visual impairment [Not Recovered/Not Resolved]

NARRATIVE: CASE EVENT DATE: 2011
